FAERS Safety Report 15998258 (Version 2)
Quarter: 2020Q4

REPORT INFORMATION
  Report Type: Spontaneous
  Country: CA (occurrence: CA)
  Receive Date: 20190223
  Receipt Date: 20201023
  Transmission Date: 20210113
  Serious: Yes (Death)
  Sender: FDA-Public Use
  Company Number: CA-009507513-1902CAN007515

PATIENT
  Age: 74 Year
  Sex: Male

DRUGS (2)
  1. VANCOMYCIN HYDROCHLORIDE. [Suspect]
     Active Substance: VANCOMYCIN HYDROCHLORIDE
     Indication: ENTEROCOCCAL INFECTION
     Dosage: 1 GRAM
     Route: 042
  2. INVANZ [Suspect]
     Active Substance: ERTAPENEM SODIUM
     Indication: ENTEROCOCCAL INFECTION
     Dosage: UNK
     Route: 065

REACTIONS (3)
  - Product name confusion [Fatal]
  - Wrong product administered [Fatal]
  - Drug ineffective [Fatal]
